FAERS Safety Report 5292122-0 (Version None)
Quarter: 2007Q2

REPORT INFORMATION
  Report Type: 
  Country: None (occurrence: None)
  Receive Date: 20070410
  Receipt Date: 20070404
  Transmission Date: 20071010
  Serious: Yes (Life-Threatening, Hospitalization)
  Sender: FDA-Public Use
  Company Number: US-GLAXOSMITHKLINE-A0633744A

PATIENT
  Age: 51 Year
  Sex: Male

DRUGS (8)
  1. EPZICOM [Suspect]
     Indication: HIV INFECTION
     Dosage: 1TAB PER DAY
     Route: 048
     Dates: end: 20070103
  2. LAMIVUDINE [Suspect]
     Indication: ACQUIRED IMMUNODEFICIENCY SYNDROME
     Route: 048
     Dates: start: 19990901
  3. ABACAVIR [Suspect]
     Indication: ACQUIRED IMMUNODEFICIENCY SYNDROME
     Route: 048
     Dates: start: 19990901
  4. REYATAZ [Concomitant]
  5. NORVIR [Concomitant]
  6. CLONAZEPAM [Concomitant]
  7. TERAZOSIN HCL [Concomitant]
  8. DOXEPIN HCL [Concomitant]

REACTIONS (15)
  - BLOOD PHOSPHORUS DECREASED [None]
  - BLOOD PRESSURE INCREASED [None]
  - DRUG TOXICITY [None]
  - DYSPNOEA [None]
  - EXERCISE TOLERANCE DECREASED [None]
  - GAIT DISTURBANCE [None]
  - HEART RATE INCREASED [None]
  - HYPERVENTILATION [None]
  - HYPOXIA [None]
  - MITOCHONDRIAL CYTOPATHY [None]
  - MITOCHONDRIAL DNA DELETION [None]
  - PALPITATIONS [None]
  - RESPIRATORY FAILURE [None]
  - SPEECH DISORDER [None]
  - THERAPEUTIC AGENT TOXICITY [None]
